FAERS Safety Report 19289085 (Version 1)
Quarter: 2021Q2

REPORT INFORMATION
  Report Type: Spontaneous
  Country: CA (occurrence: CA)
  Receive Date: 20210521
  Receipt Date: 20210521
  Transmission Date: 20210717
  Serious: Yes (Other)
  Sender: FDA-Public Use
  Company Number: CA-BAUSCH-BL-2021-016878

PATIENT
  Age: 63 Year
  Sex: Female

DRUGS (1)
  1. DUOBRII [Suspect]
     Active Substance: HALOBETASOL PROPIONATE\TAZAROTENE
     Indication: PSORIASIS
     Dosage: 100G TUBE (0.01/0.045%); USING UP TO 5?6 TIMES A DAY TO EASE THE ITCH
     Route: 061
     Dates: start: 20210406, end: 20210505

REACTIONS (7)
  - Skin irritation [Unknown]
  - Intentional product use issue [Unknown]
  - Erythema [Unknown]
  - Pruritus [Unknown]
  - Inappropriate schedule of product administration [Unknown]
  - Wrong technique in product usage process [Unknown]
  - Rash [Unknown]

NARRATIVE: CASE EVENT DATE: 2021
